FAERS Safety Report 14207888 (Version 1)
Quarter: 2017Q4

REPORT INFORMATION
  Report Type: Spontaneous
  Country: US (occurrence: US)
  Receive Date: 20171121
  Receipt Date: 20171121
  Transmission Date: 20180321
  Serious: Yes (Death)
  Sender: FDA-Public Use
  Company Number: US-CHIESI USA INC-US-CHSI-17-00056

PATIENT

DRUGS (5)
  1. HEPARIN [Concomitant]
     Active Substance: HEPARIN SODIUM
     Indication: CAROTID ARTERY STENT INSERTION
  2. KENGREAL [Suspect]
     Active Substance: CANGRELOR
     Indication: CAROTID ARTERY STENT INSERTION
     Route: 041
  3. EPTIFIBATIDE. [Concomitant]
     Active Substance: EPTIFIBATIDE
     Indication: CAROTID ARTERY STENT INSERTION
  4. HEPARIN [Concomitant]
     Active Substance: HEPARIN SODIUM
     Indication: THROMBOEMBOLECTOMY
     Route: 065
  5. EPTIFIBATIDE. [Concomitant]
     Active Substance: EPTIFIBATIDE
     Indication: THROMBOEMBOLECTOMY
     Route: 065

REACTIONS (2)
  - Off label use [None]
  - Brain oedema [Fatal]
